FAERS Safety Report 7782944-6 (Version None)
Quarter: 2011Q3

REPORT INFORMATION
  Report Type: 
  Country: None (occurrence: None)
  Receive Date: 20110928
  Receipt Date: 20110922
  Transmission Date: 20111222
  Serious: Yes (Other)
  Sender: FDA-Public Use
  Company Number: US-PFIZER INC-2011209553

PATIENT
  Sex: Female

DRUGS (1)
  1. SUTENT [Suspect]
     Dosage: 50 MG, 1X/DAY, 4/2 SCHEDULE
     Route: 048
     Dates: start: 20110831

REACTIONS (3)
  - HEPATIC ENZYME INCREASED [None]
  - CHROMATURIA [None]
  - JAUNDICE [None]
